FAERS Safety Report 15651879 (Version 1)
Quarter: 2018Q4

REPORT INFORMATION
  Report Type: Spontaneous
  Country: GB (occurrence: GB)
  Receive Date: 20181123
  Receipt Date: 20181123
  Transmission Date: 20190205
  Serious: Yes (Death, Hospitalization)
  Sender: FDA-Public Use
  Company Number: GB-009507513-1811GBR005098

PATIENT
  Age: 65 Year
  Sex: Male

DRUGS (12)
  1. NITROGLYCERIN. [Concomitant]
     Active Substance: NITROGLYCERIN
  2. BISOPROLOL [Concomitant]
     Active Substance: BISOPROLOL
  3. TEGRETOL [Concomitant]
     Active Substance: CARBAMAZEPINE
  4. PHENOBARBITAL SODIUM. [Concomitant]
     Active Substance: PHENOBARBITAL SODIUM
  5. MONOMIL XL [Concomitant]
     Active Substance: ISOSORBIDE MONONITRATE
  6. SIMVASTATIN. [Suspect]
     Active Substance: SIMVASTATIN
     Indication: MYOCARDIAL ISCHAEMIA
     Dosage: NIGHT
     Route: 048
     Dates: start: 20130828
  7. LANSOPRAZOLE. [Concomitant]
     Active Substance: LANSOPRAZOLE
  8. AMLODIPINE [Concomitant]
     Active Substance: AMLODIPINE BESYLATE
  9. POLYETHYLENE GLYCOL [Concomitant]
     Active Substance: POLYETHYLENE GLYCOLS
  10. ASPIRIN. [Concomitant]
     Active Substance: ASPIRIN
  11. INFLUENZA VIRUS VACCINE (UNSPECIFIED) [Concomitant]
     Active Substance: INFLUENZA VIRUS VACCINE
  12. DIHYDROCODEINE BITARTRATE [Concomitant]
     Active Substance: DIHYDROCODEINE BITARTRATE

REACTIONS (7)
  - Abdominal pain upper [Unknown]
  - Cold sweat [Unknown]
  - Pallor [Unknown]
  - Pancreatitis acute [Not Recovered/Not Resolved]
  - Sepsis [Fatal]
  - Hyperhidrosis [Unknown]
  - Bradycardia [Unknown]

NARRATIVE: CASE EVENT DATE: 20181005
